FAERS Safety Report 8801109 (Version 3)
Quarter: 2013Q1

REPORT INFORMATION
  Report Type: Spontaneous
  Country: FR (occurrence: FR)
  Receive Date: 20120921
  Receipt Date: 20130129
  Transmission Date: 20140127
  Serious: Yes (Hospitalization)
  Sender: FDA-Public Use
  Company Number: FR-GLAXOSMITHKLINE-B0829762A

PATIENT
  Age: 66 None
  Sex: Female

DRUGS (12)
  1. ZELITREX [Suspect]
     Indication: HERPES ZOSTER
     Dosage: 1000MG THREE TIMES PER DAY
     Route: 048
     Dates: start: 20120806, end: 20120819
  2. LYRICA [Suspect]
     Indication: HERPES ZOSTER
     Route: 048
     Dates: start: 20120806, end: 20120814
  3. TEGRETOL [Suspect]
     Indication: HERPES ZOSTER
     Dosage: 200MG THREE TIMES PER DAY
     Route: 048
     Dates: start: 20120814, end: 20120819
  4. IXPRIM [Suspect]
     Indication: HERPES ZOSTER
     Dosage: 2TAB THREE TIMES PER DAY
     Route: 048
     Dates: start: 20120810, end: 20120814
  5. ACUPAN [Suspect]
     Indication: HERPES ZOSTER
     Route: 048
     Dates: start: 20120806, end: 20120810
  6. XANAX [Concomitant]
     Indication: HERPES ZOSTER
     Route: 048
     Dates: start: 20120810, end: 20120819
  7. FLUOXETINE [Concomitant]
  8. LANZOR [Concomitant]
  9. PRAVASTATINE [Concomitant]
  10. SOTALOL [Concomitant]
  11. SPAGULAX [Concomitant]
  12. STILNOX [Concomitant]

REACTIONS (8)
  - Nausea [Recovered/Resolved]
  - Vomiting [Recovered/Resolved]
  - Decreased appetite [Recovered/Resolved]
  - Abdominal pain [Recovered/Resolved]
  - Diarrhoea [Recovered/Resolved]
  - Headache [Recovered/Resolved]
  - Asthenia [Recovered/Resolved]
  - Hyponatraemia [Recovered/Resolved]
